FAERS Safety Report 10203009 (Version 1)
Quarter: 2014Q2

REPORT INFORMATION
  Report Type: Spontaneous
  Country: BR (occurrence: BR)
  Receive Date: 20140528
  Receipt Date: 20140528
  Transmission Date: 20141212
  Serious: Yes (Other)
  Sender: FDA-Public Use
  Company Number: BR-PFIZER INC-2014141705

PATIENT
  Age: 80 Year
  Sex: Female
  Weight: 60 kg

DRUGS (15)
  1. DETRUSITOL LA [Suspect]
     Indication: URINARY INCONTINENCE
     Dosage: 1 CAPSULE STRENGTH 4 MG A DAY
     Route: 048
     Dates: start: 20101227
  2. DETRUSITOL LA [Suspect]
     Dosage: 1 CAPSULE STRENGTH 4 MG, 1X/DAY
     Dates: start: 20140422
  3. CLORANA [Concomitant]
     Indication: HYPERTENSION
     Dosage: 1 CP STRENGTH 25 MG A DAY
     Dates: start: 2004
  4. CLORANA [Concomitant]
     Indication: DIURETIC THERAPY
  5. SERTRALINE HYDROCHLORIDE [Concomitant]
     Dosage: 1 DAILY
     Dates: start: 201312
  6. ENDROSTAN [Concomitant]
     Indication: OSTEOPOROSIS
     Dosage: 1 CP STRENGTH 70 MG PER WEEK
     Dates: start: 201403
  7. LABIRIN [Concomitant]
     Indication: LABYRINTHITIS
     Dosage: 1 CP STRENGTH 24 MG ONCE A DAY (IN THE MORNING)
     Dates: start: 2013
  8. LABIRIN [Concomitant]
     Indication: DIZZINESS
  9. LABIRIN [Concomitant]
     Indication: TINNITUS
  10. LOSARTAN [Concomitant]
     Indication: HYPERTENSION
     Dosage: 2 CP STRENGTH 50 MG A DAY
     Dates: start: 2004
  11. OMEPRAZOLE [Concomitant]
     Indication: REFLUX GASTRITIS
     Dosage: 1 A DAY
     Dates: start: 2009
  12. OMEPRAZOLE [Concomitant]
     Indication: DYSPEPSIA
     Dosage: UNK
     Dates: start: 2011
  13. PURAN T4 [Concomitant]
     Indication: THYROID DISORDER
     Dosage: 1 CP STRENGTH 50 MG IN FASTING
     Dates: start: 2004
  14. RIVOTRIL [Concomitant]
     Indication: SLEEP DISORDER
     Dosage: 1 CP STRENGTH 2.5 MG ONCE A DAY AT NIGHT
     Dates: start: 2009
  15. SIMVASTATIN [Concomitant]
     Indication: BLOOD CHOLESTEROL ABNORMAL
     Dosage: 1 CP ONCE A DAY AT NIGHT
     Dates: start: 2004

REACTIONS (4)
  - Blood pressure fluctuation [Unknown]
  - Dry throat [Unknown]
  - Speech disorder [Unknown]
  - Dry mouth [Not Recovered/Not Resolved]
